FAERS Safety Report 10287586 (Version 2)
Quarter: 2014Q3

REPORT INFORMATION
  Report Type: Spontaneous
  Country: US (occurrence: None)
  Receive Date: 20140707
  Receipt Date: 20140908
  Transmission Date: 20150326
  Serious: Yes (Hospitalization, Other)
  Sender: FDA-Public Use
  Company Number: UNT-2014-002953

PATIENT
  Age: 82 Year
  Sex: Female
  Weight: 73.9 kg

DRUGS (3)
  1. ADCIRCA [Suspect]
     Active Substance: TADALAFIL
     Indication: COR PULMONALE CHRONIC
     Route: 048
     Dates: start: 20100512
  2. LETAIRIS [Concomitant]
     Active Substance: AMBRISENTAN
  3. TYVASO [Suspect]
     Active Substance: TREPROSTINIL
     Indication: COR PULMONALE CHRONIC
     Route: 055
     Dates: start: 20111208

REACTIONS (5)
  - Arthritis [None]
  - Metabolic disorder [None]
  - Pulmonary arterial hypertension [None]
  - Asthenia [None]
  - Abasia [None]

NARRATIVE: CASE EVENT DATE: 201406
